FAERS Safety Report 26151385 (Version 1)
Quarter: 2025Q4

REPORT INFORMATION
  Report Type: Spontaneous
  Country: US (occurrence: US)
  Receive Date: 20251212
  Receipt Date: 20251212
  Transmission Date: 20260117
  Serious: No
  Sender: MERCK SHARP & DOHME LLC
  Company Number: US-009507513-2350944

PATIENT
  Sex: Female
  Weight: 108.8 kg

DRUGS (13)
  1. WINREVAIR [Suspect]
     Active Substance: SOTATERCEPT-CSRK
     Indication: Product used for unknown indication
     Dates: end: 20251021
  2. WINREVAIR [Suspect]
     Active Substance: SOTATERCEPT-CSRK
     Dosage: DECREASED TO 0.5 MG/KG
     Dates: start: 202511
  3. WINREVAIR [Suspect]
     Active Substance: SOTATERCEPT-CSRK
  4. WINREVAIR [Suspect]
     Active Substance: SOTATERCEPT-CSRK
  5. REMODULIN [Suspect]
     Active Substance: TREPROSTINIL
     Indication: Pulmonary arterial hypertension
     Dosage: 0.048 ?G/KG (SELF-FILL CASSETTE WITH 2.9 ML; PUMP RATE OF 34 MCL/HR), ?CONTINUOUS, STRENGTH: 10.0...
     Route: 058
     Dates: start: 20240801
  6. REMODULIN [Suspect]
     Active Substance: TREPROSTINIL
     Indication: Pulmonary arterial hypertension
     Dosage: 0.040 ?G/KG (SELF-FILL WITH 25 ML/CASSETTE; RATE 28MCL PER HOUR),CONTINUING,
     Route: 058
  7. VITAMIN C [Concomitant]
     Active Substance: ASCORBIC ACID
  8. ACETAMINOPHEN [Concomitant]
     Active Substance: ACETAMINOPHEN
  9. TADALAFIL [Concomitant]
     Active Substance: TADALAFIL
  10. FUROSEMIDE [Concomitant]
     Active Substance: FUROSEMIDE
  11. DIPHENHYDRAMINE HYDROCHLORIDE [Concomitant]
     Active Substance: DIPHENHYDRAMINE HYDROCHLORIDE
  12. ALPRAZOLAM [Concomitant]
     Active Substance: ALPRAZOLAM
  13. FERROUS SULFATE [Concomitant]
     Active Substance: FERROUS SULFATE

REACTIONS (1)
  - Haemoglobin increased [Unknown]
